FAERS Safety Report 23631542 (Version 4)
Quarter: 2024Q3

REPORT INFORMATION
  Report Type: Spontaneous
  Country: IN (occurrence: IN)
  Receive Date: 20240314
  Receipt Date: 20240930
  Transmission Date: 20241017
  Serious: Yes (Other)
  Sender: PFIZER
  Company Number: IN-PFIZER INC-PV202300075887

PATIENT
  Age: 44 Year
  Sex: Male
  Weight: 75.3 kg

DRUGS (6)
  1. LORLATINIB [Suspect]
     Active Substance: LORLATINIB
     Indication: Non-small cell lung cancer stage IV
     Dosage: 100 MG, 1X/DAY
     Route: 048
     Dates: start: 20230328
  2. DEXAMETHASONE [Concomitant]
     Active Substance: DEXAMETHASONE
     Dosage: 4MG ALTERNATE DAYS
  3. ACENOCOUMAROL [Concomitant]
     Active Substance: ACENOCOUMAROL
     Dosage: 2 MG
  4. ROZAVEL F [Concomitant]
     Dosage: 20
  5. ASPIRIN [Concomitant]
     Active Substance: ASPIRIN
     Dosage: 75 MG
  6. CYANOCOBALAMIN [Concomitant]
     Active Substance: CYANOCOBALAMIN
     Dosage: 1000 MG

REACTIONS (12)
  - Deep vein thrombosis [Unknown]
  - Heart rate increased [Unknown]
  - Body mass index increased [Unknown]
  - Hyperglycaemia [Unknown]
  - Hypercholesterolaemia [Unknown]
  - Weight increased [Unknown]
  - Blood triglycerides increased [Unknown]
  - Visual impairment [Unknown]
  - Dysarthria [Unknown]
  - Hepatic enzyme increased [Unknown]
  - Blood pressure increased [Unknown]
  - Viral infection [Unknown]

NARRATIVE: CASE EVENT DATE: 20240205
